FAERS Safety Report 4514786-9 (Version None)
Quarter: 2004Q4

REPORT INFORMATION
  Report Type: 
  Country: None (occurrence: None)
  Receive Date: 20041124
  Receipt Date: 20041124
  Transmission Date: 20050328
  Serious: Yes (Other)
  Sender: FDA-Public Use
  Company Number: None

PATIENT
  Sex: Female
  Weight: 96.4 kg

DRUGS (3)
  1. VISIPAQUE 320 [Suspect]
     Indication: COMPUTERISED TOMOGRAM
     Dosage: 140ML   ONE TIME   INTRAVENOU
     Route: 042
     Dates: start: 20041115, end: 20041115
  2. SALINE FLUSHES [Concomitant]
  3. MORPHINE [Concomitant]

REACTIONS (3)
  - EXTRAVASATION [None]
  - PAIN IN EXTREMITY [None]
  - PARAESTHESIA [None]
